FAERS Safety Report 6042897-8 (Version None)
Quarter: 2009Q1

REPORT INFORMATION
  Report Type: 
  Country: None (occurrence: None)
  Receive Date: 20090119
  Receipt Date: 20090115
  Transmission Date: 20090719
  Serious: Yes (Other)
  Sender: FDA-Public Use
  Company Number: A0762839A

PATIENT
  Age: 81 Year
  Sex: Male

DRUGS (3)
  1. ADVAIR DISKUS 100/50 [Suspect]
     Indication: ASTHMA
     Dosage: 1PUFF TWICE PER DAY
     Route: 055
  2. PROVENTIL [Concomitant]
  3. LEVAQUIN [Concomitant]

REACTIONS (2)
  - BRONCHITIS [None]
  - MACULAR DEGENERATION [None]
